FAERS Safety Report 4631013-2 (Version None)
Quarter: 2005Q2

REPORT INFORMATION
  Report Type: 
  Country: None (occurrence: None)
  Receive Date: 20050408
  Receipt Date: 20050330
  Transmission Date: 20051028
  Serious: Yes (Death, Hospitalization)
  Sender: FDA-Public Use
  Company Number: AT-ABBOTT-05P-167-0295990-00

PATIENT
  Sex: Male

DRUGS (6)
  1. AKINETON [Suspect]
     Indication: DRUG USE FOR UNKNOWN INDICATION
     Route: 048
     Dates: start: 20040727
  2. AKINETON [Suspect]
     Route: 048
     Dates: start: 20040723, end: 20040726
  3. OXCARBAZEPINE [Suspect]
     Indication: DRUG USE FOR UNKNOWN INDICATION
     Dosage: UP TO 1800 MG
     Route: 048
     Dates: start: 20040726
  4. OXCARBAZEPINE [Suspect]
     Dosage: UP 10 1200 MG
     Route: 048
     Dates: start: 20020101, end: 20040725
  5. FLUPHENAZINE HCL [Suspect]
     Indication: DRUG USE FOR UNKNOWN INDICATION
     Route: 048
     Dates: start: 20040816
  6. FLUPHENAZINE HCL [Suspect]
     Route: 048
     Dates: start: 20040714, end: 20040816

REACTIONS (2)
  - PNEUMONIA VIRAL [None]
  - STATUS EPILEPTICUS [None]
